FAERS Safety Report 6909019-X (Version None)
Quarter: 2010Q3

REPORT INFORMATION
  Report Type: 
  Country: None (occurrence: None)
  Receive Date: 20100803
  Receipt Date: 20100728
  Transmission Date: 20110219
  Serious: Yes (Other)
  Sender: FDA-Public Use
  Company Number: 2010SP024339

PATIENT
  Age: 82 Year
  Sex: Male

DRUGS (8)
  1. CLARITIN [Suspect]
     Indication: HEADACHE
     Dosage: 5 MG;Q12H;PO
     Route: 048
     Dates: start: 20100425, end: 20100427
  2. CLARITIN [Suspect]
     Indication: HYPERSENSITIVITY
     Dosage: 5 MG;Q12H;PO
     Route: 048
     Dates: start: 20100425, end: 20100427
  3. CLARITIN [Suspect]
     Indication: PRURITUS
     Dosage: 5 MG;Q12H;PO
     Route: 048
     Dates: start: 20100425, end: 20100427
  4. PLAVIX [Concomitant]
  5. NIASPAN [Concomitant]
  6. SOTALOL HCL [Concomitant]
  7. FOLBIC [Concomitant]
  8. DIGOXIN [Concomitant]

REACTIONS (2)
  - CHROMATURIA [None]
  - URINE OUTPUT DECREASED [None]
